FAERS Safety Report 10501624 (Version 1)
Quarter: 2014Q4

REPORT INFORMATION
  Report Type: Spontaneous
  Country: US (occurrence: None)
  Receive Date: 20141006
  Receipt Date: 20141006
  Transmission Date: 20150528
  Serious: Yes (Hospitalization, Other)
  Sender: FDA-Public Use
  Company Number: None

PATIENT
  Age: 58 Year
  Sex: Female
  Weight: 65.32 kg

DRUGS (1)
  1. TROSPIUM CHLORIDE. [Suspect]
     Active Substance: TROSPIUM CHLORIDE
     Indication: BLADDER DISORDER
     Route: 048
     Dates: start: 20140621, end: 20140817

REACTIONS (7)
  - Blood cholesterol abnormal [None]
  - Thyroid function test abnormal [None]
  - Dry mouth [None]
  - Decreased appetite [None]
  - Drug-induced liver injury [None]
  - Fatigue [None]
  - Weight decreased [None]

NARRATIVE: CASE EVENT DATE: 20140818
